FAERS Safety Report 19505671 (Version 1)
Quarter: 2021Q3

REPORT INFORMATION
  Report Type: Spontaneous
  Country: US (occurrence: US)
  Receive Date: 20210708
  Receipt Date: 20210708
  Transmission Date: 20211014
  Serious: Yes (Death, Life-Threatening, Hospitalization, Other)
  Sender: FDA-Public Use
  Company Number: US-HIKMA PHARMACEUTICALS USA INC.-US-H14001-21-54882

PATIENT
  Age: 49 Year
  Sex: Male

DRUGS (2)
  1. REMDESIVIR. [Concomitant]
     Active Substance: REMDESIVIR
     Indication: COVID-19
     Dosage: UNKNOWN
     Route: 065
  2. DEXAMETHASONE. [Suspect]
     Active Substance: DEXAMETHASONE
     Indication: COVID-19
     Dosage: UNKNOWN
     Route: 065

REACTIONS (6)
  - Hypoxia [Fatal]
  - Latent tuberculosis [Fatal]
  - Acidosis [Fatal]
  - Sepsis [Fatal]
  - Cytomegalovirus infection [Fatal]
  - Tuberculosis [Fatal]
